FAERS Safety Report 23048880 (Version 1)
Quarter: 2023Q4

REPORT INFORMATION
  Report Type: Spontaneous
  Country: TR (occurrence: TR)
  Receive Date: 20231010
  Receipt Date: 20231010
  Transmission Date: 20240109
  Serious: Yes (Hospitalization, Other)
  Sender: FDA-Public Use
  Company Number: TR-GRANULES-TR-2023GRALIT00257

PATIENT
  Age: 28 Year
  Sex: Female

DRUGS (4)
  1. METHYLERGONOVINE MALEATE [Suspect]
     Active Substance: METHYLERGONOVINE MALEATE
     Indication: Postpartum haemorrhage
     Route: 030
  2. OLANZAPINE [Concomitant]
     Active Substance: OLANZAPINE
     Route: 065
  3. RISPERIDONE [Concomitant]
     Active Substance: RISPERIDONE
     Route: 065
  4. LORAZEPAM [Concomitant]
     Active Substance: LORAZEPAM
     Dosage: 3 X 1 MG/DAY
     Route: 065

REACTIONS (2)
  - Reversible cerebral vasoconstriction syndrome [Recovered/Resolved]
  - Cytotoxic lesions of corpus callosum [Recovered/Resolved]
